FAERS Safety Report 9573043 (Version 1)
Quarter: 2013Q4

REPORT INFORMATION
  Report Type: Spontaneous
  Country: FR (occurrence: FR)
  Receive Date: 20131001
  Receipt Date: 20131001
  Transmission Date: 20140711
  Serious: Yes (Life-Threatening)
  Sender: FDA-Public Use
  Company Number: FR-PFIZER INC-2013274861

PATIENT
  Age: 58 Year
  Sex: Male

DRUGS (6)
  1. CELEBREX [Suspect]
     Indication: BACK PAIN
     Dosage: 200 MG, 1X/DAY
     Route: 048
     Dates: start: 20130510, end: 20130512
  2. CRESTOR [Interacting]
     Indication: HYPERCHOLESTEROLAEMIA
     Dosage: 5 MG, 1X/DAY
     Route: 048
     Dates: start: 2012, end: 20130512
  3. SOLUPRED [Interacting]
     Indication: LUNG DISORDER
     Dosage: 40 MG, 1X/DAY
     Route: 048
     Dates: start: 20130508, end: 20130512
  4. OFLOCET [Concomitant]
     Indication: PNEUMONIA PNEUMOCOCCAL
     Dosage: UNK
     Dates: start: 201305
  5. AUGMENTIN [Concomitant]
     Indication: PNEUMONIA PNEUMOCOCCAL
     Dosage: UNK
     Dates: start: 201305
  6. SOLUPRED [Concomitant]
     Indication: PNEUMONIA PNEUMOCOCCAL
     Dosage: UNK
     Dates: start: 201305

REACTIONS (5)
  - Renal failure acute [Recovered/Resolved]
  - Renal tubular necrosis [Recovered/Resolved]
  - Rhabdomyolysis [Recovered/Resolved]
  - Cardiac failure [Recovered/Resolved]
  - Drug interaction [Recovered/Resolved]
